FAERS Safety Report 13344790 (Version 1)
Quarter: 2017Q1

REPORT INFORMATION
  Report Type: Report from Study
  Country: VE (occurrence: VE)
  Receive Date: 20170317
  Receipt Date: 20170317
  Transmission Date: 20170428
  Serious: Yes (Hospitalization)
  Sender: FDA-Public Use
  Company Number: PHHY2017VE037928

PATIENT
  Sex: Female

DRUGS (1)
  1. EXJADE [Suspect]
     Active Substance: DEFERASIROX
     Indication: IRON OVERLOAD
     Dosage: UNK UNK, QD
     Route: 048
     Dates: start: 20150323

REACTIONS (8)
  - Sickle cell anaemia with crisis [Unknown]
  - Synovial cyst [Unknown]
  - General physical health deterioration [Unknown]
  - Lung disorder [Unknown]
  - Therapy non-responder [Unknown]
  - Cardiac failure [Unknown]
  - Liver disorder [Unknown]
  - Renal impairment [Unknown]
